FAERS Safety Report 6160545-3 (Version None)
Quarter: 2009Q2

REPORT INFORMATION
  Report Type: 
  Country: None (occurrence: None)
  Receive Date: 20090420
  Receipt Date: 20090414
  Transmission Date: 20091009
  Serious: Yes (Hospitalization)
  Sender: FDA-Public Use
  Company Number: FR-WYE-G03498909

PATIENT
  Weight: 12.1 kg

DRUGS (4)
  1. ADVIL [Suspect]
     Indication: PYREXIA
     Route: 048
     Dates: start: 20090304, end: 20090305
  2. ADVIL [Suspect]
     Indication: NASOPHARYNGITIS
  3. DOLIPRANE [Concomitant]
     Indication: PYREXIA
     Route: 054
     Dates: start: 20090304, end: 20090305
  4. DOLIPRANE [Concomitant]
     Indication: NASOPHARYNGITIS

REACTIONS (4)
  - ASTHMA [None]
  - BACTERIAL INFECTION [None]
  - LYMPHADENOPATHY [None]
  - RESPIRATORY DISTRESS [None]
